FAERS Safety Report 4977931-7 (Version None)
Quarter: 2006Q2

REPORT INFORMATION
  Report Type: 
  Country: None (occurrence: None)
  Receive Date: 20060420
  Receipt Date: 20060417
  Transmission Date: 20061013
  Serious: Yes (Hospitalization)
  Sender: FDA-Public Use
  Company Number: US-MERCK-0604USA02855

PATIENT
  Age: 73 Year
  Sex: Male
  Weight: 88 kg

DRUGS (6)
  1. VIOXX [Suspect]
     Route: 048
     Dates: start: 20000501, end: 20000901
  2. INDERAL [Concomitant]
     Route: 065
  3. PAXIL [Concomitant]
     Route: 065
  4. MONOPRIL [Concomitant]
     Route: 065
  5. XANAX [Concomitant]
     Route: 065
  6. PREVACID [Concomitant]
     Route: 065

REACTIONS (2)
  - ANXIETY [None]
  - CEREBROVASCULAR ACCIDENT [None]
